FAERS Safety Report 4888338-5 (Version None)
Quarter: 2006Q1

REPORT INFORMATION
  Report Type: 
  Country: None (occurrence: None)
  Receive Date: 20060123
  Receipt Date: 20060117
  Transmission Date: 20060701
  Serious: Yes (Death)
  Sender: FDA-Public Use
  Company Number: MX-GLAXOSMITHKLINE-B0407359A

PATIENT
  Sex: Female

DRUGS (2)
  1. AMOXICILLIN [Suspect]
     Route: 065
  2. ETHINYL ESTRADIOL + LEVONORGESTREL [Concomitant]
     Route: 048

REACTIONS (1)
  - NEUTROPENIA [None]
